FAERS Safety Report 10904236 (Version 3)
Quarter: 2016Q4

REPORT INFORMATION
  Report Type: Spontaneous
  Country: US (occurrence: US)
  Receive Date: 20150311
  Receipt Date: 20161205
  Transmission Date: 20170206
  Serious: Yes (Hospitalization, Other)
  Sender: FDA-Public Use
  Company Number: US-ELI_LILLY_AND_COMPANY-US201503000989

PATIENT
  Sex: Male

DRUGS (3)
  1. CYMBALTA [Suspect]
     Active Substance: DULOXETINE HYDROCHLORIDE
     Dosage: 10 MG, QOD
     Route: 048
     Dates: end: 20140710
  2. CYMBALTA [Suspect]
     Active Substance: DULOXETINE HYDROCHLORIDE
     Indication: ANXIETY
     Dosage: 20 MG, QD
     Route: 048
  3. CYMBALTA [Suspect]
     Active Substance: DULOXETINE HYDROCHLORIDE
     Indication: DEPRESSION
     Dosage: UNK UNK, UNKNOWN
     Route: 065
     Dates: start: 2007

REACTIONS (30)
  - Influenza like illness [Unknown]
  - Abdominal pain upper [Unknown]
  - Diarrhoea [Unknown]
  - Agitation [Unknown]
  - Lethargy [Unknown]
  - Affect lability [Unknown]
  - Headache [Unknown]
  - Insomnia [Unknown]
  - Feeling abnormal [Unknown]
  - Dysphoria [Unknown]
  - Fatigue [Unknown]
  - Nausea [Unknown]
  - Drug withdrawal syndrome [Unknown]
  - Panic disorder [Unknown]
  - Seizure [Unknown]
  - Tremor [Unknown]
  - Photopsia [Unknown]
  - Dizziness [Unknown]
  - Head discomfort [Unknown]
  - Anxiety [Unknown]
  - Nightmare [Unknown]
  - Irritability [Unknown]
  - Sensory disturbance [Unknown]
  - Agoraphobia [Unknown]
  - Suicidal ideation [Unknown]
  - Tinnitus [Unknown]
  - Aggression [Unknown]
  - Confusional state [Unknown]
  - Vertigo [Unknown]
  - Paraesthesia [Unknown]
